FAERS Safety Report 14783916 (Version 1)
Quarter: 2018Q2

REPORT INFORMATION
  Report Type: Spontaneous
  Country: BR (occurrence: BR)
  Receive Date: 20180420
  Receipt Date: 20180420
  Transmission Date: 20180711
  Serious: Yes (Other)
  Sender: FDA-Public Use
  Company Number: BR-MACLEODS PHARMACEUTICALS US LTD-MAC2018012751

PATIENT

DRUGS (10)
  1. ABCIXIMAB [Suspect]
     Active Substance: ABCIXIMAB
     Dosage: 2 DF, TOTAL, INTRACORONARY AND PERIPHERALLY DELIVERED, 5 MG
     Route: 022
  2. ASPIRIN. [Concomitant]
     Active Substance: ASPIRIN
     Dosage: 200 MG, UNK
     Route: 065
  3. CLOPIDOGREL [Suspect]
     Active Substance: CLOPIDOGREL BISULFATE
     Dosage: 75 MG, UNK
     Route: 065
  4. CLOPIDOGREL [Suspect]
     Active Substance: CLOPIDOGREL BISULFATE
     Indication: PRODUCT USED FOR UNKNOWN INDICATION
     Dosage: 600 MG, UNK
     Route: 048
  5. CANDESARTAN. [Concomitant]
     Active Substance: CANDESARTAN
     Indication: PRODUCT USED FOR UNKNOWN INDICATION
     Dosage: UNK
     Route: 065
  6. HEPARIN [Concomitant]
     Active Substance: HEPARIN SODIUM
     Indication: PRODUCT USED FOR UNKNOWN INDICATION
     Dosage: 5000 IU, UNK
     Route: 065
  7. ASPIRIN. [Concomitant]
     Active Substance: ASPIRIN
     Indication: PRODUCT USED FOR UNKNOWN INDICATION
     Dosage: 100 MG, UNK
     Route: 065
  8. EVEROLIMUS. [Concomitant]
     Active Substance: EVEROLIMUS
     Indication: ELECTROCARDIOGRAM ST SEGMENT ELEVATION
     Dosage: DRUG ELUTING STENT
     Route: 065
  9. ABCIXIMAB [Suspect]
     Active Substance: ABCIXIMAB
     Indication: PRODUCT USED FOR UNKNOWN INDICATION
     Dosage: CONTINUOUS INFUSION DURING THE NEXT 12 H
     Route: 065
  10. ATORVASTATIN [Concomitant]
     Active Substance: ATORVASTATIN
     Indication: PRODUCT USED FOR UNKNOWN INDICATION
     Dosage: UNK
     Route: 065

REACTIONS (3)
  - Vascular stent thrombosis [Recovered/Resolved]
  - Hypersensitivity [Recovered/Resolved]
  - Kounis syndrome [Recovered/Resolved]
